FAERS Safety Report 19226032 (Version 1)
Quarter: 2021Q2

REPORT INFORMATION
  Report Type: Spontaneous
  Country: US (occurrence: US)
  Receive Date: 20210505
  Receipt Date: 20210505
  Transmission Date: 20210717
  Serious: No
  Sender: FDA-Public Use
  Company Number: US-ROCHE-2706984

PATIENT
  Sex: Female

DRUGS (2)
  1. AVASTIN [Suspect]
     Active Substance: BEVACIZUMAB
     Indication: LUNG NEOPLASM MALIGNANT
     Dosage: 15MG PER KG OVER 30?90MINS ;
     Route: 065
     Dates: start: 20200427
  2. AVASTIN [Suspect]
     Active Substance: BEVACIZUMAB
     Dosage: 15MG PER KG OVER 30?90MINS
     Route: 042
     Dates: start: 20200427

REACTIONS (1)
  - Constipation [Not Recovered/Not Resolved]
